FAERS Safety Report 5356391-0 (Version None)
Quarter: 2007Q2

REPORT INFORMATION
  Report Type: 
  Country: None (occurrence: None)
  Receive Date: 20070530
  Receipt Date: 20061106
  Transmission Date: 20071010
  Serious: Yes (Hospitalization, Other)
  Sender: FDA-Public Use
  Company Number: US200609006321

PATIENT
  Age: 36 Year
  Sex: Male
  Weight: 108.8 kg

DRUGS (2)
  1. ZYPREXA [Suspect]
     Dosage: 25 MG
     Dates: start: 20020401, end: 20050301
  2. HALOPERIDOL [Concomitant]

REACTIONS (8)
  - BLOOD CHOLESTEROL ABNORMAL [None]
  - BLOOD TRIGLYCERIDES INCREASED [None]
  - CONVULSION [None]
  - DIABETES MELLITUS [None]
  - HYPERTENSION [None]
  - METABOLIC DISORDER [None]
  - PANCREATITIS [None]
  - PRESCRIBED OVERDOSE [None]
